FAERS Safety Report 20606598 (Version 1)
Quarter: 2022Q1

REPORT INFORMATION
  Report Type: Spontaneous
  Country: US (occurrence: US)
  Receive Date: 20220317
  Receipt Date: 20220317
  Transmission Date: 20220424
  Serious: Yes (Other)
  Sender: FDA-Public Use
  Company Number: US-SANOFI-01010858

PATIENT
  Age: 44 Year
  Sex: Female

DRUGS (1)
  1. NEXVIAZYME [Suspect]
     Active Substance: AVALGLUCOSIDASE ALFA-NGPT
     Indication: Glycogen storage disease type II
     Dosage: UNK
     Dates: start: 2021

REACTIONS (6)
  - Loss of consciousness [Unknown]
  - Mydriasis [Unknown]
  - Mood altered [Unknown]
  - Abnormal behaviour [Unknown]
  - Dysarthria [Unknown]
  - Alcohol interaction [Unknown]
